FAERS Safety Report 4284078-4 (Version None)
Quarter: 2004Q1

REPORT INFORMATION
  Report Type: 
  Country: None (occurrence: None)
  Receive Date: 20040202
  Receipt Date: 20040202
  Transmission Date: 20041129
  Serious: No
  Sender: FDA-Public Use
  Company Number: None

PATIENT
  Age: 33 Year
  Sex: Female
  Weight: 49.8957 kg

DRUGS (1)
  1. SULFASALAZINE [Suspect]
     Dosage: 2 2 ORAL
     Route: 048
     Dates: start: 20031113, end: 20031126

REACTIONS (3)
  - CRYING [None]
  - HEADACHE [None]
  - NAUSEA [None]
